FAERS Safety Report 24238575 (Version 1)
Quarter: 2024Q3

REPORT INFORMATION
  Report Type: Spontaneous
  Country: DE (occurrence: DE)
  Receive Date: 20240822
  Receipt Date: 20240822
  Transmission Date: 20241017
  Serious: Yes (Death, Other)
  Sender: AMGEN
  Company Number: DE-AMGEN-DEUSP2024164402

PATIENT
  Age: 16 Year
  Sex: Female

DRUGS (9)
  1. PREDNISONE [Suspect]
     Active Substance: PREDNISONE
     Indication: Haemophagocytic lymphohistiocytosis
     Dosage: 0.5 MILLIGRAM/KILOGRAM, QD
     Route: 065
  2. RITUXIMAB [Concomitant]
     Active Substance: RITUXIMAB
     Indication: Diffuse large B-cell lymphoma
     Dosage: UNK
     Route: 065
  3. RITUXIMAB [Concomitant]
     Active Substance: RITUXIMAB
     Dosage: UNK
     Route: 029
  4. RITUXIMAB [Concomitant]
     Active Substance: RITUXIMAB
     Dosage: UNK
     Route: 065
  5. METHOTREXATE [Concomitant]
     Active Substance: METHOTREXATE
     Indication: Diffuse large B-cell lymphoma
  6. ETOPOSIDE [Concomitant]
     Active Substance: ETOPOSIDE
     Indication: Haemophagocytic lymphohistiocytosis
     Dosage: UNK
  7. VINCRISTINE [Concomitant]
     Active Substance: VINCRISTINE
     Indication: Haemophagocytic lymphohistiocytosis
     Dosage: UNK
  8. CYCLOPHOSPHAMIDE [Concomitant]
     Active Substance: CYCLOPHOSPHAMIDE
     Indication: Haemophagocytic lymphohistiocytosis
     Dosage: UNK
  9. DOXORUBICIN [Concomitant]
     Active Substance: DOXORUBICIN
     Indication: Haemophagocytic lymphohistiocytosis
     Dosage: UNK

REACTIONS (6)
  - Bone marrow failure [Fatal]
  - Encephalitis herpes [Unknown]
  - Renal failure [Unknown]
  - Diffuse large B-cell lymphoma [Unknown]
  - Seizure [Unknown]
  - Visual impairment [Unknown]
